FAERS Safety Report 5581826-8 (Version None)
Quarter: 2008Q1

REPORT INFORMATION
  Report Type: 
  Country: None (occurrence: None)
  Receive Date: 20080104
  Receipt Date: 20071226
  Transmission Date: 20080703
  Serious: Yes (Other)
  Sender: FDA-Public Use
  Company Number: US-PFIZER INC-2008000150

PATIENT
  Sex: Female
  Weight: 81.6 kg

DRUGS (12)
  1. CHANTIX [Suspect]
     Indication: SMOKING CESSATION THERAPY
  2. NEURONTIN [Suspect]
     Indication: AGITATION
     Dates: start: 20071217, end: 20071225
  3. NEURONTIN [Suspect]
     Indication: ANXIETY
  4. LAMICTAL [Suspect]
     Indication: DEPRESSION
     Dates: start: 20071210, end: 20071225
  5. VICODIN [Concomitant]
  6. XANAX [Concomitant]
  7. NEXIUM [Concomitant]
  8. ZONISAMIDE [Concomitant]
  9. TOPROL-XL [Concomitant]
  10. BENICAR HCT [Concomitant]
  11. LIPITOR [Concomitant]
  12. ACETYLSALICYLIC ACID SRT [Concomitant]

REACTIONS (15)
  - ABNORMAL BEHAVIOUR [None]
  - DECREASED APPETITE [None]
  - DEPRESSION [None]
  - DIZZINESS [None]
  - FEELING ABNORMAL [None]
  - FEELING OF BODY TEMPERATURE CHANGE [None]
  - GASTROINTESTINAL DISORDER [None]
  - HEADACHE [None]
  - HEART RATE DECREASED [None]
  - NERVOUSNESS [None]
  - PSYCHOMOTOR HYPERACTIVITY [None]
  - STRESS [None]
  - VIRAL INFECTION [None]
  - VOMITING [None]
  - WEIGHT INCREASED [None]
